FAERS Safety Report 13338671 (Version 3)
Quarter: 2017Q2

REPORT INFORMATION
  Report Type: Spontaneous
  Country: US (occurrence: US)
  Receive Date: 20170315
  Receipt Date: 20170512
  Transmission Date: 20170830
  Serious: Yes (Hospitalization, Other)
  Sender: FDA-Public Use
  Company Number: US-JNJFOC-20170307835

PATIENT
  Sex: Female

DRUGS (1)
  1. ULTRACET [Suspect]
     Active Substance: ACETAMINOPHEN\TRAMADOL HYDROCHLORIDE
     Indication: PAIN
     Route: 065
     Dates: start: 2015, end: 201603

REACTIONS (7)
  - Hospitalisation [Recovered/Resolved]
  - Delirium [Unknown]
  - Abdominal pain upper [Unknown]
  - Incorrect dose administered [Unknown]
  - Cardiac failure congestive [Unknown]
  - Rash [Unknown]
  - Hallucination [Unknown]

NARRATIVE: CASE EVENT DATE: 2016
